FAERS Safety Report 16936417 (Version 1)
Quarter: 2019Q4

REPORT INFORMATION
  Report Type: Spontaneous
  Country: FR (occurrence: FR)
  Receive Date: 20191018
  Receipt Date: 20191018
  Transmission Date: 20200122
  Serious: Yes (Hospitalization, Other)
  Sender: FDA-Public Use
  Company Number: FR-PFIZER INC-2019447419

PATIENT
  Age: 68 Year
  Sex: Male

DRUGS (6)
  1. TIAPRIDAL [Concomitant]
     Active Substance: TIAPRIDE HYDROCHLORIDE
     Indication: SEDATION
     Dosage: UNK
     Dates: start: 20150529, end: 20150531
  2. ALPRAZOLAM. [Suspect]
     Active Substance: ALPRAZOLAM
     Indication: COGNITIVE DISORDER
     Dosage: UNK
     Route: 048
     Dates: end: 20150529
  3. RISPERDAL [Concomitant]
     Active Substance: RISPERIDONE
     Dosage: UNK
     Dates: start: 20150529, end: 20150529
  4. PAROXETINE. [Concomitant]
     Active Substance: PAROXETINE
     Indication: COGNITIVE DISORDER
     Dosage: UNK
     Dates: end: 20150529
  5. EXELON [Concomitant]
     Active Substance: RIVASTIGMINE TARTRATE
     Indication: COGNITIVE DISORDER
     Dosage: UNK
     Dates: end: 20150529
  6. NUCTALON [Suspect]
     Active Substance: ESTAZOLAM
     Indication: COGNITIVE DISORDER
     Dosage: 2 MG, UNK (OFF LABEL USE)
     Route: 048
     Dates: end: 20150529

REACTIONS (5)
  - Blood creatine phosphokinase increased [Unknown]
  - Off label use [Unknown]
  - Product use in unapproved indication [Unknown]
  - Seizure [Recovered/Resolved]
  - Agitation [Recovered/Resolved]

NARRATIVE: CASE EVENT DATE: 20150531
